FAERS Safety Report 12418864 (Version 1)
Quarter: 2016Q2

REPORT INFORMATION
  Report Type: Spontaneous
  Country: US (occurrence: None)
  Receive Date: 20160527
  Receipt Date: 20160527
  Transmission Date: 20160815
  Serious: Yes (Other)
  Sender: FDA-Public Use
  Company Number: None

PATIENT
  Age: 53 Year
  Sex: Female
  Weight: 62.6 kg

DRUGS (7)
  1. VITAMIN D [Concomitant]
     Active Substance: CHOLECALCIFEROL
  2. PROLIA [Suspect]
     Active Substance: DENOSUMAB
     Indication: OSTEOPOROSIS
     Dosage: 1 INJECTION(S) EVERY 6 MONTHS INJECTION IN HIP AREA
     Dates: start: 20160429
  3. VITAMIN C [Concomitant]
     Active Substance: ASCORBIC ACID
  4. VITAMIN B12 [Concomitant]
     Active Substance: CYANOCOBALAMIN
  5. MULTI [Concomitant]
  6. CALCIUM [Concomitant]
     Active Substance: CALCIUM
  7. DAILY VITAMIN SUPPLEMENTS [Concomitant]

REACTIONS (3)
  - Pain in extremity [None]
  - Grip strength decreased [None]
  - Hypoaesthesia [None]

NARRATIVE: CASE EVENT DATE: 20160516
